FAERS Safety Report 6332481-0 (Version None)
Quarter: 2009Q3

REPORT INFORMATION
  Report Type: 
  Country: None (occurrence: None)
  Receive Date: 20090828
  Receipt Date: 20081009
  Transmission Date: 20100115
  Serious: No
  Sender: FDA-Public Use
  Company Number: A0732447A

PATIENT
  Age: 42 Year
  Sex: Male
  Weight: 75.5 kg

DRUGS (3)
  1. MALARONE [Suspect]
     Indication: MALARIA PROPHYLAXIS
     Route: 048
     Dates: start: 20070901
  2. LOTREL [Concomitant]
  3. HYDROCHLOROTHIAZIDE [Concomitant]

REACTIONS (3)
  - MOUTH ULCERATION [None]
  - OEDEMA MOUTH [None]
  - ORAL PAIN [None]
